FAERS Safety Report 12323506 (Version 2)
Quarter: 2016Q2

REPORT INFORMATION
  Report Type: Report from Study
  Country: MX (occurrence: MX)
  Receive Date: 20160502
  Receipt Date: 20160525
  Transmission Date: 20160815
  Serious: Yes (Other)
  Sender: FDA-Public Use
  Company Number: PHHY2016MX051963

PATIENT
  Sex: Male

DRUGS (9)
  1. LASILACTON [Concomitant]
     Active Substance: FUROSEMIDE\SPIRONOLACTONE
     Indication: POLYURIA
     Dosage: 1 DF, QD
     Route: 065
     Dates: start: 201507
  2. CARVEDILOL. [Concomitant]
     Active Substance: CARVEDILOL
     Indication: PRODUCT USED FOR UNKNOWN INDICATION
     Route: 065
  3. TYLEX (PARACETAMOL/CODEINE PHOSPHATE) [Concomitant]
     Active Substance: ACETAMINOPHEN\CODEINE PHOSPHATE
     Indication: PAIN
     Dosage: 1 DF, (EVERY 6 OR 8 HOURS )
     Route: 065
     Dates: start: 201507
  4. ASPIRINE [Concomitant]
     Active Substance: ASPIRIN
     Indication: PRODUCT USED FOR UNKNOWN INDICATION
     Route: 065
  5. DILATREND [Concomitant]
     Active Substance: CARVEDILOL
     Indication: CARDIOMEGALY
     Dosage: 1 DF, QD
     Route: 065
     Dates: start: 201507
  6. DIOVAN [Suspect]
     Active Substance: VALSARTAN
     Indication: CARDIAC DISORDER
     Dosage: 2 DF (80 MG), QD
     Route: 065
     Dates: start: 201507
  7. LANOXIN [Concomitant]
     Active Substance: DIGOXIN
     Indication: CARDIOMEGALY
     Dosage: 1 DF, (EVERY 5 DAYS)
     Route: 065
     Dates: start: 201507
  8. DIGOXIN. [Concomitant]
     Active Substance: DIGOXIN
     Indication: PRODUCT USED FOR UNKNOWN INDICATION
     Route: 065
  9. DIOVAN [Suspect]
     Active Substance: VALSARTAN
     Indication: CARDIOMEGALY

REACTIONS (5)
  - Choking [Unknown]
  - Pulmonary oedema [Unknown]
  - Malaise [Unknown]
  - Product use issue [Not Recovered/Not Resolved]
  - Lung disorder [Unknown]
